FAERS Safety Report 6109646-6 (Version None)
Quarter: 2009Q1

REPORT INFORMATION
  Report Type: 
  Country: None (occurrence: None)
  Receive Date: 20090310
  Receipt Date: 20080121
  Transmission Date: 20090719
  Serious: No
  Sender: FDA-Public Use
  Company Number: A0704256A

PATIENT
  Age: 20 Year
  Sex: Female

DRUGS (1)
  1. NICORETTE (MINT) [Suspect]
     Dosage: 2MG SINGLE DOSE
     Route: 002
     Dates: start: 20080118, end: 20080118

REACTIONS (6)
  - COUGH [None]
  - DRUG EXPOSURE DURING PREGNANCY [None]
  - ERUCTATION [None]
  - FOAMING AT MOUTH [None]
  - GLOSSODYNIA [None]
  - THROAT IRRITATION [None]
